FAERS Safety Report 4400087-6 (Version None)
Quarter: 2004Q3

REPORT INFORMATION
  Report Type: 
  Country: None (occurrence: None)
  Receive Date: 20040714
  Receipt Date: 20040705
  Transmission Date: 20050211
  Serious: Yes (Death)
  Sender: FDA-Public Use
  Company Number: 2004222423CA

PATIENT
  Age: 62 Year
  Sex: Female
  Weight: 65 kg

DRUGS (5)
  1. FRAGMIN [Suspect]
     Indication: BREAST CANCER METASTATIC
     Dosage: 5000 IU, CYCLE 2, QD, SUBCUTANEOUS
     Route: 058
     Dates: start: 20040419, end: 20040608
  2. ADRIAMYCIN PFS [Suspect]
     Indication: BREAST CANCER METASTATIC
     Dosage: 101 MG, CYCLE1, EVERY 3 WEEKS, IV
     Route: 042
     Dates: start: 20040616, end: 20040616
  3. COMPARATOR-CYCLOPHOSPHAMIDE (CYCLOPHSOPHAMIDE) [Suspect]
     Indication: BREAST CANCER METASTATIC
     Dosage: 50 MG, QD, CYCLE 2, ORAL
     Route: 048
     Dates: start: 20040419, end: 20040608
  4. COMPARATOR-METHOTREXATE (METHOTREXATE) [Suspect]
     Indication: BREAST CANCER METASTATIC
     Dosage: 2.5 MG, BID X 2 WEEKK, CYCLE 2, ORAL
     Route: 048
     Dates: start: 20040419, end: 20040608
  5. COMPARATOR--PREDNISONE [Suspect]
     Indication: BREAST CANCER METASTATIC
     Dosage: 5 MG, QD, CYCLE 2, ORAL
     Route: 048
     Dates: start: 20040419, end: 20040608

REACTIONS (5)
  - ACUTE RESPIRATORY DISTRESS SYNDROME [None]
  - DEHYDRATION [None]
  - LUNG CONSOLIDATION [None]
  - PLEURAL EFFUSION [None]
  - SUDDEN DEATH [None]
